FAERS Safety Report 17327383 (Version 1)
Quarter: 2020Q1

REPORT INFORMATION
  Report Type: Spontaneous
  Country: FR (occurrence: FR)
  Receive Date: 20200127
  Receipt Date: 20200127
  Transmission Date: 20200409
  Serious: Yes (Hospitalization, Other)
  Sender: FDA-Public Use
  Company Number: FR-PFIZER INC-2020031493

PATIENT
  Age: 75 Year
  Sex: Male

DRUGS (4)
  1. ELOXATIN [Suspect]
     Active Substance: OXALIPLATIN
     Dosage: 176 MG, EVERY 2 WEEKS (QOW)
     Route: 065
     Dates: start: 20181114
  2. GEMCITABINE HYDROCHLORIDE. [Suspect]
     Active Substance: GEMCITABINE HYDROCHLORIDE
     Dosage: 800 MG/M2, EVERY 2 WEEKS (QOW)
     Route: 065
     Dates: start: 20181217, end: 20190103
  3. GEMCITABINE HYDROCHLORIDE. [Suspect]
     Active Substance: GEMCITABINE HYDROCHLORIDE
     Indication: PANCREATIC NEUROENDOCRINE TUMOUR
     Dosage: 1760 MG, EVERY 2 WEEKS (QOW)
     Route: 065
     Dates: start: 20181114
  4. ELOXATIN [Suspect]
     Active Substance: OXALIPLATIN
     Indication: PANCREATIC NEUROENDOCRINE TUMOUR
     Dosage: 85 MG/M2, EVERY 2 WEEKS (QOW)
     Route: 065
     Dates: start: 20181217, end: 20190103

REACTIONS (5)
  - Lung disorder [Recovered/Resolved]
  - Nausea [Recovering/Resolving]
  - Asthenia [Recovering/Resolving]
  - Neuropathy peripheral [Recovered/Resolved]
  - Decreased appetite [Recovering/Resolving]

NARRATIVE: CASE EVENT DATE: 201811
